FAERS Safety Report 9648581 (Version 1)
Quarter: 2013Q4

REPORT INFORMATION
  Report Type: Spontaneous
  Country: US (occurrence: None)
  Receive Date: 20131025
  Receipt Date: 20131025
  Transmission Date: 20140711
  Serious: Yes (Hospitalization)
  Sender: FDA-Public Use
  Company Number: None

PATIENT
  Age: 58 Year
  Sex: Female
  Weight: 72.58 kg

DRUGS (1)
  1. LINCOCIN [Suspect]
     Indication: COUGH
     Dates: start: 20131019

REACTIONS (5)
  - Asthenia [None]
  - Feeling abnormal [None]
  - Muscular weakness [None]
  - Abasia [None]
  - Speech disorder [None]
